FAERS Safety Report 7047924-7 (Version None)
Quarter: 2010Q4

REPORT INFORMATION
  Report Type: 
  Country: None (occurrence: None)
  Receive Date: 20101014
  Receipt Date: 20101014
  Transmission Date: 20110411
  Serious: No
  Sender: FDA-Public Use
  Company Number: None

PATIENT
  Age: 79 Year
  Sex: Female

DRUGS (6)
  1. LETAIRIS [Suspect]
     Indication: PULMONARY HYPERTENSION
     Dosage: LETAIRIS 5MG DAILY ORALLY
     Route: 048
     Dates: start: 20100913, end: 20101005
  2. FUROSEMIDE [Concomitant]
  3. LEVOTHROID [Concomitant]
  4. ATENOLOL [Concomitant]
  5. SPIRIVA [Concomitant]
  6. PROAIR HFA [Concomitant]

REACTIONS (3)
  - DIZZINESS [None]
  - FATIGUE [None]
  - SOMNOLENCE [None]
